FAERS Safety Report 10364778 (Version 2)
Quarter: 2014Q3

REPORT INFORMATION
  Report Type: Spontaneous
  Country: JP (occurrence: JP)
  Receive Date: 20140806
  Receipt Date: 20140806
  Transmission Date: 20150326
  Serious: Yes (Hospitalization)
  Sender: FDA-Public Use
  Company Number: JP-ROCHE-1408802

PATIENT
  Age: 28 Day
  Sex: Male
  Weight: 3.05 kg

DRUGS (4)
  1. DENOSINE [Suspect]
     Active Substance: GANCICLOVIR
     Indication: CONGENITAL CYTOMEGALOVIRUS INFECTION
     Route: 041
     Dates: start: 20140411, end: 20140501
  2. SODIUM CHLORIDE. [Concomitant]
     Active Substance: SODIUM CHLORIDE
     Route: 041
     Dates: start: 20140410
  3. VALIXA [Suspect]
     Active Substance: VALGANCICLOVIR
     Indication: CONGENITAL CYTOMEGALOVIRUS INFECTION
     Route: 065
     Dates: start: 20140519, end: 20140609
  4. SAWACILLIN [Concomitant]
     Active Substance: AMOXICILLIN
     Route: 065
     Dates: start: 20140414

REACTIONS (4)
  - Anal abscess [Recovered/Resolved]
  - Liver disorder [Recovered/Resolved]
  - Off label use [Unknown]
  - Bone marrow failure [Recovered/Resolved]

NARRATIVE: CASE EVENT DATE: 20140502
